FAERS Safety Report 13569042 (Version 2)
Quarter: 2020Q3

REPORT INFORMATION
  Report Type: Report from Study
  Country: BE (occurrence: BE)
  Receive Date: 20170522
  Receipt Date: 20200428
  Transmission Date: 20201105
  Serious: Yes (Hospitalization)
  Sender: FDA-Public Use
  Company Number: BE-JNJFOC-20160506431

PATIENT
  Age: 49 Year
  Sex: Female
  Weight: 87 kg

DRUGS (4)
  1. BORTEZOMIB. [Suspect]
     Active Substance: BORTEZOMIB
     Indication: PLASMA CELL MYELOMA
     Dosage: D1,4,8,11 EVERY CYCLE, MOST RECENT DOSE ON 06?MAY?2016
     Route: 058
     Dates: start: 20160301
  2. DARATUMUMAB [Suspect]
     Active Substance: DARATUMUMAB
     Indication: PLASMA CELL MYELOMA
     Dosage: FREQUENCY 11/15D, MOST RECENT DOSE 26?APR?2016
     Route: 042
     Dates: start: 20160301
  3. THALIDOMIDE [Suspect]
     Active Substance: THALIDOMIDE
     Indication: PLASMA CELL MYELOMA
     Route: 048
     Dates: start: 20160301
  4. DEXAMETHASONE. [Suspect]
     Active Substance: DEXAMETHASONE
     Indication: PLASMA CELL MYELOMA
     Dosage: D2,8,9,15 AND 16, MOST RECENT DOSE ON 04?MAY?201640MG (D1,2) OR 20MG (D8, 9, 15, 16) (IV ON J1?15)
     Route: 048
     Dates: start: 20160301, end: 20160504

REACTIONS (2)
  - Pancreatitis acute [Recovered/Resolved with Sequelae]
  - Abdominal pain upper [Recovered/Resolved]

NARRATIVE: CASE EVENT DATE: 20160505
